FAERS Safety Report 18112482 (Version 1)
Quarter: 2020Q3

REPORT INFORMATION
  Report Type: Report from Study
  Country: CA (occurrence: CA)
  Receive Date: 20200805
  Receipt Date: 20200805
  Transmission Date: 20201103
  Serious: Yes (Other)
  Sender: FDA-Public Use
  Company Number: CA-ACCORD-193758

PATIENT
  Age: 50 Year
  Sex: Female

DRUGS (8)
  1. REMICADE [Concomitant]
     Active Substance: INFLIXIMAB
     Route: 042
  2. CICLOSPORIN [Suspect]
     Active Substance: CYCLOSPORINE
     Indication: PRODUCT USED FOR UNKNOWN INDICATION
     Dosage: NOT SPECIFIED
     Route: 065
  3. METHOTREXATE. [Suspect]
     Active Substance: METHOTREXATE
     Indication: PRODUCT USED FOR UNKNOWN INDICATION
     Route: 065
  4. ADALIMUMAB [Concomitant]
     Active Substance: ADALIMUMAB
     Route: 058
  5. COSENTYX [Suspect]
     Active Substance: SECUKINUMAB
     Indication: PSORIATIC ARTHROPATHY
     Dosage: 1 EVERY 1 WEEKS
     Route: 058
  6. SULFASALAZINE. [Concomitant]
     Active Substance: SULFASALAZINE
     Dosage: NOT SPECIFIED
     Route: 065
  7. PREDNISONE. [Concomitant]
     Active Substance: PREDNISONE
     Dosage: NOT SPECIFIED, 1 EVERY 1 DAYS
     Route: 048
  8. ENBREL [Concomitant]
     Active Substance: ETANERCEPT
     Route: 065

REACTIONS (3)
  - Therapeutic product effect incomplete [Unknown]
  - Pain [Unknown]
  - Psoriatic arthropathy [Unknown]
